FAERS Safety Report 6877983-3 (Version None)
Quarter: 2010Q3

REPORT INFORMATION
  Report Type: 
  Country: None (occurrence: None)
  Receive Date: 20100727
  Receipt Date: 20100722
  Transmission Date: 20110219
  Serious: Yes (Life-Threatening)
  Sender: FDA-Public Use
  Company Number: CA-B.I. PHARMACEUTICALS,INC./RIDGEFIELD-2010-CN-00469CN

PATIENT
  Age: 38 Year
  Sex: Male

DRUGS (7)
  1. SPIRIVA [Suspect]
     Dosage: 18 MCG
     Route: 055
  2. APO-SALVENT CFC FREE [Concomitant]
     Route: 055
  3. ASAPHEN E.C. [Concomitant]
     Route: 048
  4. NOVOLIN GE NPH [Concomitant]
     Route: 058
  5. NOVORAPID [Concomitant]
     Route: 058
  6. NOVO VENLAFAXINE XR [Concomitant]
     Route: 048
  7. SYNTHROID [Concomitant]
     Route: 048

REACTIONS (1)
  - BLOOD GLUCOSE INCREASED [None]
